FAERS Safety Report 4579670-3 (Version None)
Quarter: 2005Q1

REPORT INFORMATION
  Report Type: 
  Country: None (occurrence: None)
  Receive Date: 20050210
  Receipt Date: 20050126
  Transmission Date: 20050727
  Serious: Yes (Death)
  Sender: FDA-Public Use
  Company Number: 2004AL000000791

PATIENT
  Age: 44 Year
  Sex: Female

DRUGS (5)
  1. VERAPAMIL HYDROCHLORIDE [Suspect]
     Dosage: PO
     Route: 048
  2. METFORMIN HYDROCHLORIDE [Suspect]
     Dosage: PO
     Route: 048
  3. METOPROLOL [Suspect]
     Dosage: PO
     Route: 048
  4. GABAPENTIN [Suspect]
  5. LEVOTHYROXINE [Suspect]
     Dosage: PO
     Route: 048

REACTIONS (7)
  - CARDIAC PACEMAKER INSERTION [None]
  - COMPLETED SUICIDE [None]
  - HYPERGLYCAEMIA [None]
  - HYPERKALAEMIA [None]
  - HYPOTENSION [None]
  - INTENTIONAL MISUSE [None]
  - SOMNOLENCE [None]
